FAERS Safety Report 25455770 (Version 2)
Quarter: 2025Q3

REPORT INFORMATION
  Report Type: Spontaneous
  Country: US (occurrence: US)
  Receive Date: 20250619
  Receipt Date: 20250711
  Transmission Date: 20251021
  Serious: Yes (Other)
  Sender: BAYER HEALTHCARE PHARMACEUTICALS INC.
  Company Number: US-BAYER-2025A080086

PATIENT
  Age: 37 Year
  Sex: Female

DRUGS (1)
  1. MIRENA [Suspect]
     Active Substance: LEVONORGESTREL
     Indication: Contraception
     Dosage: 20?G/DAY
     Route: 015
     Dates: start: 20240408

REACTIONS (11)
  - Pregnancy with contraceptive device [None]
  - Drug ineffective [None]
  - Device expulsion [Recovered/Resolved]
  - Pelvic pain [Not Recovered/Not Resolved]
  - Illness [None]
  - Weight decreased [None]
  - Stress [None]
  - Loss of personal independence in daily activities [None]
  - Vomiting [None]
  - Hot flush [None]
  - Night sweats [None]

NARRATIVE: CASE EVENT DATE: 20250101
